FAERS Safety Report 6577587-6 (Version None)
Quarter: 2010Q1

REPORT INFORMATION
  Report Type: 
  Country: None (occurrence: None)
  Receive Date: 20100211
  Receipt Date: 20100204
  Transmission Date: 20100710
  Serious: Yes (Other)
  Sender: FDA-Public Use
  Company Number: JP-BAYER-201010464BYL

PATIENT
  Age: 66 Year
  Sex: Male
  Weight: 48 kg

DRUGS (7)
  1. NEXAVAR [Suspect]
     Indication: RENAL CELL CARCINOMA
     Dosage: TOTAL DAILY DOSE: 800 MG  UNIT DOSE: 200 MG
     Route: 048
     Dates: start: 20080409
  2. NEXAVAR [Suspect]
     Route: 048
  3. ULGUT [Concomitant]
     Route: 048
     Dates: start: 20080430
  4. CATLEP [Concomitant]
     Route: 062
     Dates: start: 20080430, end: 20080610
  5. TAGAMET [Concomitant]
     Route: 048
     Dates: start: 20080430
  6. MOBIC [Concomitant]
     Route: 048
     Dates: start: 20080528
  7. LAXOBERON [Concomitant]
     Route: 048
     Dates: start: 20081022

REACTIONS (4)
  - DIARRHOEA [None]
  - EPISTAXIS [None]
  - MALAISE [None]
  - PALMAR-PLANTAR ERYTHRODYSAESTHESIA SYNDROME [None]
